FAERS Safety Report 21800557 (Version 1)
Quarter: 2022Q4

REPORT INFORMATION
  Report Type: Spontaneous
  Country: TR (occurrence: TR)
  Receive Date: 20221230
  Receipt Date: 20221230
  Transmission Date: 20230113
  Serious: Yes (Hospitalization, Other)
  Sender: FDA-Public Use
  Company Number: TR-BAYER-2022P032737

PATIENT
  Age: 32 Year
  Sex: Female

DRUGS (3)
  1. DROSPIRENONE\ETHINYL ESTRADIOL [Suspect]
     Active Substance: DROSPIRENONE\ETHINYL ESTRADIOL
  2. CLIMARA [Suspect]
     Active Substance: ESTRADIOL
     Indication: Heavy menstrual bleeding
     Route: 062
  3. PROGESTERONE [Suspect]
     Active Substance: PROGESTERONE
     Indication: Heavy menstrual bleeding

REACTIONS (4)
  - Intermenstrual bleeding [None]
  - Blood loss anaemia [None]
  - Liver function test increased [None]
  - Off label use [None]
